FAERS Safety Report 5766342-2 (Version None)
Quarter: 2008Q2

REPORT INFORMATION
  Report Type: 
  Country: None (occurrence: None)
  Receive Date: 20080611
  Receipt Date: 20080603
  Transmission Date: 20081010
  Serious: Yes (Death, Hospitalization, Other)
  Sender: FDA-Public Use
  Company Number: US-AMGEN-STX234490

PATIENT
  Sex: Female
  Weight: 48.1 kg

DRUGS (17)
  1. ENBREL [Suspect]
     Indication: RHEUMATOID ARTHRITIS
     Dates: start: 20000104, end: 20070401
  2. CYANOCOBALAMIN [Concomitant]
  3. CALCIUM WITH VITAMIN D [Concomitant]
  4. CHONDROITIN SULFATE [Concomitant]
  5. DARVOCET-N 100 [Concomitant]
  6. FOLIC ACID [Concomitant]
  7. GLUCOSAMINE [Concomitant]
  8. PREDNISONE TAB [Concomitant]
  9. ZIAC [Concomitant]
  10. PLAQUENIL [Concomitant]
  11. METHOTREXATE [Concomitant]
  12. POTASSIUM CHLORIDE [Concomitant]
  13. ESTRACE [Concomitant]
  14. PROVERA [Concomitant]
  15. LEUCOVORIN CALCIUM [Concomitant]
  16. ARAVA [Concomitant]
     Dates: start: 20031001
  17. AZULFIDINE EN-TABS [Concomitant]
     Dates: start: 20070201

REACTIONS (11)
  - BASAL CELL CARCINOMA [None]
  - CATARACT [None]
  - CHILLS [None]
  - DRUG HYPERSENSITIVITY [None]
  - MYELODYSPLASTIC SYNDROME [None]
  - NEPHROLITHIASIS [None]
  - OSTEOPOROSIS [None]
  - PANCYTOPENIA [None]
  - RASH [None]
  - REFRACTORY ANAEMIA WITH RINGED SIDEROBLASTS [None]
  - RHEUMATOID ARTHRITIS [None]
